FAERS Safety Report 6635596-2 (Version None)
Quarter: 2010Q1

REPORT INFORMATION
  Report Type: 
  Country: None (occurrence: None)
  Receive Date: 20100315
  Receipt Date: 20100309
  Transmission Date: 20100710
  Serious: Yes (Other)
  Sender: FDA-Public Use
  Company Number: US-MERCK-1003USA01300

PATIENT
  Sex: Female

DRUGS (2)
  1. FOSAMAX [Suspect]
     Indication: OSTEOPOROSIS
     Route: 048
     Dates: start: 20000301
  2. FOSAMAX [Suspect]
     Route: 048

REACTIONS (3)
  - FRACTURE [None]
  - PELVIC FRACTURE [None]
  - SPINAL FRACTURE [None]
